FAERS Safety Report 13090709 (Version 1)
Quarter: 2017Q1

REPORT INFORMATION
  Report Type: Report from Study
  Country: US (occurrence: US)
  Receive Date: 20170105
  Receipt Date: 20170105
  Transmission Date: 20170428
  Serious: No
  Sender: FDA-Public Use
  Company Number: US-009507513-1612USA013085

PATIENT
  Sex: Female

DRUGS (1)
  1. LOVASTATIN. [Suspect]
     Active Substance: LOVASTATIN
     Dosage: UNK, UNKNOWN
     Route: 048

REACTIONS (1)
  - Muscle spasms [Unknown]
